FAERS Safety Report 10663486 (Version 1)
Quarter: 2014Q4

REPORT INFORMATION
  Report Type: Spontaneous
  Country: SE (occurrence: SE)
  Receive Date: 20141219
  Receipt Date: 20141219
  Transmission Date: 20150529
  Serious: Yes (Life-Threatening, Hospitalization, Disabling, Other)
  Sender: FDA-Public Use
  Company Number: SE-AMGEN-SWESP2014098097

PATIENT
  Sex: Male

DRUGS (2)
  1. METHOTREXATE ORION [Suspect]
     Active Substance: METHOTREXATE
     Indication: RHEUMATOID ARTHRITIS
     Dosage: UNK
     Route: 065
  2. ENBREL [Suspect]
     Active Substance: ETANERCEPT
     Indication: RHEUMATOID ARTHRITIS
     Dosage: UNK
     Route: 065

REACTIONS (4)
  - Limb operation [Recovered/Resolved with Sequelae]
  - Drug dose omission [Unknown]
  - Coma [Recovered/Resolved with Sequelae]
  - Bacterial infection [Recovered/Resolved with Sequelae]
